FAERS Safety Report 9910156 (Version 1)
Quarter: 2014Q1

REPORT INFORMATION
  Report Type: Spontaneous
  Country: US (occurrence: None)
  Receive Date: 20140212
  Receipt Date: 20140212
  Transmission Date: 20141002
  Serious: Yes (Other)
  Sender: FDA-Public Use
  Company Number: 14AE007

PATIENT
  Sex: Female

DRUGS (1)
  1. EQUATE IBUPROFEN [Suspect]
     Indication: PROCEDURAL PAIN
     Dosage: 3 BY MOUTH EVERY 6 HOURS
     Dates: start: 20140124, end: 20140128

REACTIONS (2)
  - Off label use [None]
  - Incorrect dose administered [None]
